FAERS Safety Report 5948748-1 (Version None)
Quarter: 2008Q4

REPORT INFORMATION
  Report Type: 
  Country: None (occurrence: None)
  Receive Date: 20081107
  Receipt Date: 20081022
  Transmission Date: 20090506
  Serious: Yes (Hospitalization)
  Sender: FDA-Public Use
  Company Number: 2008S1019061

PATIENT
  Age: 55 Year
  Sex: Male

DRUGS (2)
  1. FLUCONAZOLE [Suspect]
     Indication: COCCIDIOIDOMYCOSIS
     Dosage: DAILY
  2. FLUCONAZOLE [Suspect]
     Indication: MENINGITIS COCCIDIOIDES
     Dosage: DAILY

REACTIONS (11)
  - CEREBROVASCULAR ACCIDENT [None]
  - CONDITION AGGRAVATED [None]
  - CULTURE POSITIVE [None]
  - DRUG RESISTANCE [None]
  - ECONOMIC PROBLEM [None]
  - HEPATITIS C ANTIBODY POSITIVE [None]
  - HYDROPNEUMOTHORAX [None]
  - MENINGITIS COCCIDIOIDES [None]
  - PATHOGEN RESISTANCE [None]
  - PLEURITIC PAIN [None]
  - RESPIRATORY DISORDER [None]
